FAERS Safety Report 8020331-6 (Version None)
Quarter: 2012Q1

REPORT INFORMATION
  Report Type: 
  Country: None (occurrence: None)
  Receive Date: 20120103
  Receipt Date: 20111219
  Transmission Date: 20120608
  Serious: Yes (Hospitalization)
  Sender: FDA-Public Use
  Company Number: US-WATSON-2011-22445

PATIENT
  Age: 2 Month
  Sex: Male

DRUGS (1)
  1. VERAPAMIL HCL [Suspect]
     Indication: TORSADE DE POINTES
     Route: 048

REACTIONS (1)
  - TORSADE DE POINTES [None]
